FAERS Safety Report 12483011 (Version 1)
Quarter: 2016Q2

REPORT INFORMATION
  Report Type: Spontaneous
  Country: JP (occurrence: JP)
  Receive Date: 20160620
  Receipt Date: 20160620
  Transmission Date: 20160815
  Serious: Yes (Other)
  Sender: FDA-Public Use
  Company Number: JP-ASTRAZENECA-2016SE59152

PATIENT
  Age: 31105 Day
  Sex: Male

DRUGS (4)
  1. EKLIRA GENUAIR [Suspect]
     Active Substance: ACLIDINIUM BROMIDE
     Indication: CHRONIC OBSTRUCTIVE PULMONARY DISEASE
     Route: 055
     Dates: start: 20160513, end: 20160517
  2. ZYLORIC [Concomitant]
     Active Substance: ALLOPURINOL
     Route: 048
     Dates: start: 20111205
  3. MYSLEE [Concomitant]
     Active Substance: ZOLPIDEM TARTRATE
     Route: 048
     Dates: start: 2007
  4. VITAMEDIN COMBINATION [Concomitant]
     Route: 048
     Dates: start: 2007

REACTIONS (6)
  - Benign prostatic hyperplasia [Unknown]
  - Dysuria [Recovered/Resolved]
  - Urethral obstruction [Unknown]
  - Urinary retention [Unknown]
  - Constipation [Recovered/Resolved]
  - Urethral stenosis [Unknown]

NARRATIVE: CASE EVENT DATE: 20160517
